FAERS Safety Report 5581421-0 (Version None)
Quarter: 2008Q1

REPORT INFORMATION
  Report Type: 
  Country: None (occurrence: None)
  Receive Date: 20080103
  Receipt Date: 20080103
  Transmission Date: 20080703
  Serious: Yes (Disabling)
  Sender: FDA-Public Use
  Company Number: None

PATIENT
  Sex: Female
  Weight: 64 kg

DRUGS (4)
  1. BEVACIZUMAB   10MG/KG   GENENTECH [Suspect]
     Indication: PANCREATIC CARCINOMA METASTATIC
     Dosage: 650MG  Q2WKS  IV
     Route: 042
     Dates: start: 20070621, end: 20071220
  2. GEMCITABINE [Concomitant]
  3. DOCETAXEL [Concomitant]
  4. COUMADIN [Concomitant]

REACTIONS (1)
  - EPISTAXIS [None]
